FAERS Safety Report 10855026 (Version 2)
Quarter: 2015Q1

REPORT INFORMATION
  Report Type: Spontaneous
  Country: GB (occurrence: GB)
  Receive Date: 20150223
  Receipt Date: 20150323
  Transmission Date: 20150721
  Serious: Yes (Other)
  Sender: FDA-Public Use
  Company Number: GB-SA-2015SA020318

PATIENT
  Age: 54 Year
  Sex: Female

DRUGS (2)
  1. DARUNAVIR [Interacting]
     Active Substance: DARUNAVIR
     Route: 048
  2. TRIAMCINOLONE ACETONIDE. [Suspect]
     Active Substance: TRIAMCINOLONE ACETONIDE
     Dosage: DOSAGE FORM: UNSPECIFIED
     Route: 065

REACTIONS (2)
  - Drug interaction [Recovering/Resolving]
  - Cushing^s syndrome [Recovered/Resolved]
